FAERS Safety Report 6199188-4 (Version None)
Quarter: 2009Q2

REPORT INFORMATION
  Report Type: 
  Country: None (occurrence: None)
  Receive Date: 20090522
  Receipt Date: 20090420
  Transmission Date: 20091009
  Serious: No
  Sender: FDA-Public Use
  Company Number: A0779686A

PATIENT
  Age: 43 Year
  Sex: Female

DRUGS (3)
  1. VERAMYST [Suspect]
     Indication: MULTIPLE ALLERGIES
     Dosage: 2SPR PER DAY
     Route: 045
     Dates: start: 20090401
  2. XYZAL [Suspect]
     Indication: MULTIPLE ALLERGIES
     Dosage: 5MG PER DAY
     Route: 048
     Dates: start: 20090401, end: 20090418
  3. BIRTH CONTROL [Concomitant]

REACTIONS (2)
  - DRUG INEFFECTIVE [None]
  - POSTNASAL DRIP [None]
